FAERS Safety Report 7649161-1 (Version None)
Quarter: 2011Q3

REPORT INFORMATION
  Report Type: 
  Country: None (occurrence: None)
  Receive Date: 20110802
  Receipt Date: 20110523
  Transmission Date: 20111222
  Serious: Yes (Hospitalization, Other)
  Sender: FDA-Public Use
  Company Number: FR-AMGEN-FRASP2011002202

PATIENT
  Sex: Male

DRUGS (4)
  1. PREDNISOLONE [Concomitant]
  2. ZOPICLONE [Concomitant]
  3. NPLATE [Suspect]
     Indication: IDIOPATHIC THROMBOCYTOPENIC PURPURA
     Dosage: 1 A?G/KG, QWK
     Route: 058
     Dates: start: 20101201, end: 20110412
  4. CORTICOSTEROIDS [Concomitant]
     Dosage: 1 MG/KG, UNK
     Dates: end: 20110405

REACTIONS (6)
  - EPISTAXIS [None]
  - THROMBOCYTOSIS [None]
  - MYALGIA [None]
  - THERAPEUTIC RESPONSE UNEXPECTED [None]
  - ECCHYMOSIS [None]
  - HAEMORRHAGE [None]
